FAERS Safety Report 6875470-X (Version None)
Quarter: 2010Q3

REPORT INFORMATION
  Report Type: 
  Country: None (occurrence: None)
  Receive Date: 20100727
  Receipt Date: 20100714
  Transmission Date: 20110219
  Serious: Yes (Other)
  Sender: FDA-Public Use
  Company Number: DE-JNJFOC-20100605356

PATIENT
  Sex: Female
  Weight: 80 kg

DRUGS (5)
  1. REMICADE [Suspect]
     Indication: COLITIS ULCERATIVE
     Dosage: HAD RECEIVED 9 INFUSIONS
     Route: 042
  2. REMICADE [Suspect]
     Route: 042
  3. REMICADE [Suspect]
     Route: 042
  4. METHOTREXATE [Concomitant]
     Indication: COLITIS ULCERATIVE
  5. MEZAVANT [Concomitant]
     Indication: COLITIS ULCERATIVE
     Dosage: 1.2 G

REACTIONS (8)
  - BRONCHOSPASM [None]
  - CHEST PAIN [None]
  - CONFUSIONAL STATE [None]
  - HYPOTENSION [None]
  - INFUSION RELATED REACTION [None]
  - OBSTRUCTIVE AIRWAYS DISORDER [None]
  - RASH [None]
  - TACHYCARDIA [None]
